FAERS Safety Report 9415038 (Version 1)
Quarter: 2013Q3

REPORT INFORMATION
  Report Type: Report from Study
  Country: US (occurrence: US)
  Receive Date: 20130723
  Receipt Date: 20130723
  Transmission Date: 20140515
  Serious: Yes (Hospitalization, Other)
  Sender: FDA-Public Use
  Company Number: US-ROCHE-1250005

PATIENT
  Age: 74 Year
  Sex: Female

DRUGS (4)
  1. BEVACIZUMAB [Suspect]
     Indication: NON-SMALL CELL LUNG CANCER
     Dosage: ON DAY 1 - OVER 30-90 MINS
     Route: 042
     Dates: start: 20130128
  2. PACLITAXEL [Suspect]
     Indication: NON-SMALL CELL LUNG CANCER
     Dosage: OVER 3 HOURS ON DAY1 OF CYCLE (CYCLE1-6)
     Route: 042
     Dates: start: 20130128
  3. CARBOPLATIN [Suspect]
     Indication: NON-SMALL CELL LUNG CANCER
     Dosage: AUC =6, 30 MINS ON DAY1 (CYCLE 1-6)
     Route: 042
     Dates: start: 20130128
  4. CIXUTUMUMAB [Suspect]
     Indication: NON-SMALL CELL LUNG CANCER
     Dosage: OVER 1 HOUR ON DAYS 1,8 AND 15 OF CYCLE. LAST DOSE ADMINISTERED ON 28/MAR/2013
     Route: 042
     Dates: start: 20130128

REACTIONS (2)
  - Convulsion [Recovered/Resolved]
  - Hypertension [Recovered/Resolved]
